FAERS Safety Report 5666708-5 (Version None)
Quarter: 2008Q1

REPORT INFORMATION
  Report Type: 
  Country: None (occurrence: None)
  Receive Date: 20080315
  Receipt Date: 20071228
  Transmission Date: 20080703
  Serious: No
  Sender: FDA-Public Use
  Company Number: US-ABBOTT-08P-163-0431969-00

PATIENT
  Sex: Female
  Weight: 89.892 kg

DRUGS (4)
  1. HUMIRA [Suspect]
     Indication: RHEUMATOID ARTHRITIS
     Route: 058
     Dates: start: 20061001, end: 20071101
  2. TRETINOIN [Suspect]
     Indication: ACNE
     Route: 061
  3. HYDROCODONE BITARTRATE [Concomitant]
     Indication: ARTHRALGIA
     Route: 048
  4. PREGABALIN [Concomitant]
     Indication: FIBROMYALGIA
     Route: 048

REACTIONS (5)
  - ADVERSE DRUG REACTION [None]
  - FATIGUE [None]
  - WOUND [None]
  - WOUND HAEMORRHAGE [None]
  - WOUND SECRETION [None]
